FAERS Safety Report 4460247-5 (Version None)
Quarter: 2004Q3

REPORT INFORMATION
  Report Type: 
  Country: None (occurrence: None)
  Receive Date: 20040928
  Receipt Date: 20040213
  Transmission Date: 20050211
  Serious: No
  Sender: FDA-Public Use
  Company Number: US-GLAXOSMITHKLINE-A0498172A

PATIENT
  Age: 71 Year
  Sex: Female

DRUGS (3)
  1. SEREVENT [Suspect]
     Dosage: 1PUFF TWICE PER DAY
     Route: 055
  2. FOSAMAX [Concomitant]
  3. ASPIRIN [Concomitant]

REACTIONS (4)
  - ASTHENIA [None]
  - PALLOR [None]
  - PSEUDOMONAS INFECTION [None]
  - TREMOR [None]
